FAERS Safety Report 6161795-2 (Version None)
Quarter: 2009Q2

REPORT INFORMATION
  Report Type: 
  Country: None (occurrence: None)
  Receive Date: 20090421
  Receipt Date: 20090414
  Transmission Date: 20091009
  Serious: Yes (Death, Hospitalization, Other)
  Sender: FDA-Public Use
  Company Number: TW-ROCHE-410327

PATIENT
  Sex: Female
  Weight: 30.8 kg

DRUGS (12)
  1. MYCOPHENOLATE MOFETIL [Suspect]
     Indication: APLASIA PURE RED CELL
     Route: 065
     Dates: start: 20060301
  2. MYCOPHENOLATE MOFETIL [Suspect]
     Dosage: DOSE INCREASED
     Route: 065
  3. EPOETIN BETA [Suspect]
     Dosage: DOSAGE FORM: VIAL.
     Route: 058
     Dates: start: 19990424, end: 20050801
  4. PROHEPARUM [Concomitant]
  5. CALCIUM ACETATE [Concomitant]
  6. GLIPIZIDE [Concomitant]
  7. UNSPECIFIED DRUG [Concomitant]
     Dosage: DRUG REPORTED AS 'MACALOL'
  8. ATIVAN [Concomitant]
     Dosage: TAKEN QHS.
  9. DULCOLAX [Concomitant]
     Dosage: DOSE REPORTED QHS.
  10. VIT C [Concomitant]
     Dosage: TAKEN EVERY HEMODIALYSIS SESSION.
     Route: 042
  11. MEVACOR [Concomitant]
     Dosage: DOSE REPORTED AS QHS.
  12. CARVEDILOL [Concomitant]

REACTIONS (4)
  - AEROMONA INFECTION [None]
  - APLASIA PURE RED CELL [None]
  - HEPATIC FAILURE [None]
  - SEPTIC SHOCK [None]
